FAERS Safety Report 5794509-6 (Version None)
Quarter: 2008Q2

REPORT INFORMATION
  Report Type: 
  Country: None (occurrence: None)
  Receive Date: 20080616
  Receipt Date: 20080604
  Transmission Date: 20081010
  Serious: Yes (Death, Life-Threatening)
  Sender: FDA-Public Use
  Company Number: AECAN200800015

PATIENT
  Age: 74 Year
  Sex: Female

DRUGS (3)
  1. ALBUMIN (HUMAN) [Suspect]
     Indication: GENERALISED OEDEMA
     Dosage: 1100 ML;TOTAL;IV
     Route: 042
     Dates: start: 20080116, end: 20080119
  2. ALBUMIN (HUMAN) [Suspect]
     Indication: HYPOALBUMINAEMIA
     Dosage: 1100 ML;TOTAL;IV
     Route: 042
     Dates: start: 20080116, end: 20080119
  3. BLOOD TRANSFUSION, AUXILIARY PRODUCTS [Concomitant]

REACTIONS (4)
  - CARDIO-RESPIRATORY ARREST [None]
  - CORONARY ARTERY INSUFFICIENCY [None]
  - OXYGEN SATURATION DECREASED [None]
  - PYREXIA [None]
